FAERS Safety Report 11846320 (Version 1)
Quarter: 2015Q4

REPORT INFORMATION
  Report Type: Report from Study
  Country: US (occurrence: US)
  Receive Date: 20151217
  Receipt Date: 20151217
  Transmission Date: 20160305
  Serious: No
  Sender: FDA-Public Use
  Company Number: US-CELGENEUS-USA-2015112415

PATIENT

DRUGS (1)
  1. THALOMID [Suspect]
     Active Substance: THALIDOMIDE
     Indication: PRODUCT USED FOR UNKNOWN INDICATION
     Route: 048

REACTIONS (6)
  - Pain in extremity [Unknown]
  - Lymphadenopathy [Unknown]
  - Hypoaesthesia [Unknown]
  - Insomnia [Unknown]
  - Headache [Unknown]
  - Back pain [Unknown]
